FAERS Safety Report 10167742 (Version 1)
Quarter: 2014Q2

REPORT INFORMATION
  Report Type: Spontaneous
  Country: US (occurrence: US)
  Receive Date: 20140512
  Receipt Date: 20140512
  Transmission Date: 20141212
  Serious: Yes (Other)
  Sender: FDA-Public Use
  Company Number: US-TEVA-480777USA

PATIENT
  Sex: Female

DRUGS (1)
  1. AMOXICILLIN [Suspect]

REACTIONS (6)
  - Coeliac disease [Unknown]
  - Myalgia [Unknown]
  - Arthralgia [Unknown]
  - Headache [Unknown]
  - Fatigue [Unknown]
  - Emotional disorder [Unknown]
